FAERS Safety Report 7543586-0 (Version None)
Quarter: 2011Q2

REPORT INFORMATION
  Report Type: 
  Country: None (occurrence: None)
  Receive Date: 20110613
  Receipt Date: 19970728
  Transmission Date: 20111010
  Serious: Yes (Hospitalization)
  Sender: FDA-Public Use
  Company Number: PHHO1997BR04073

PATIENT
  Age: 53 Year
  Sex: Female
  Weight: 65 kg

DRUGS (2)
  1. METFORMIN HCL [Concomitant]
  2. DIOVAN [Suspect]
     Dosage: 80 MG, QD
     Route: 048
     Dates: start: 19970709

REACTIONS (3)
  - HEADACHE [None]
  - ANXIETY [None]
  - HYPERTENSIVE CRISIS [None]
